FAERS Safety Report 9718060 (Version 1)
Quarter: 2013Q4

REPORT INFORMATION
  Report Type: Spontaneous
  Country: US (occurrence: US)
  Receive Date: 20131127
  Receipt Date: 20131127
  Transmission Date: 20140711
  Serious: Yes (Hospitalization, Other)
  Sender: FDA-Public Use
  Company Number: US-PFIZER INC-2013335779

PATIENT
  Age: 61 Year
  Sex: Female

DRUGS (3)
  1. SIROLIMUS [Suspect]
     Indication: HEART TRANSPLANT
     Dosage: UNK
  2. CYCLOSPORINE [Concomitant]
     Indication: IMMUNOSUPPRESSION
     Dosage: 125 MG, 2X/DAY
  3. PREDNISONE [Concomitant]
     Indication: IMMUNOSUPPRESSION
     Dosage: 5 MG, 1X/DAY

REACTIONS (3)
  - Skin exfoliation [Recovered/Resolved]
  - Dyspnoea [Unknown]
  - Off label use [Recovered/Resolved]
